FAERS Safety Report 7427336-4 (Version None)
Quarter: 2011Q2

REPORT INFORMATION
  Report Type: 
  Country: None (occurrence: None)
  Receive Date: 20110420
  Receipt Date: 20110418
  Transmission Date: 20111010
  Serious: Yes (Other)
  Sender: FDA-Public Use
  Company Number: ES-PFIZER INC-2011074558

PATIENT
  Age: 68 Year
  Sex: Female

DRUGS (2)
  1. CELECOXIB [Suspect]
     Indication: OSTEOARTHRITIS
     Dosage: 200 MG, 1X/DAY
     Route: 048
     Dates: start: 20110310, end: 20110321
  2. OPTRUMA [Concomitant]
     Indication: OSTEOARTHRITIS
     Dosage: 60 MG, UNK
     Dates: start: 20000210

REACTIONS (2)
  - FLUSHING [None]
  - DRUG ERUPTION [None]
